FAERS Safety Report 10053900 (Version 2)
Quarter: 2014Q2

REPORT INFORMATION
  Report Type: Spontaneous
  Country: US (occurrence: US)
  Receive Date: 20140402
  Receipt Date: 20140501
  Transmission Date: 20141212
  Serious: No
  Sender: FDA-Public Use
  Company Number: US-AMGEN-USASP2014016708

PATIENT
  Age: 47 Year
  Sex: Male
  Weight: 150.57 kg

DRUGS (6)
  1. ENBREL [Suspect]
     Indication: RHEUMATOID ARTHRITIS
     Dosage: 50 MG, QWK
     Route: 058
     Dates: start: 20140205
  2. URSODIOL [Concomitant]
     Dosage: 300 MG, BID
     Route: 048
  3. BABY ASPIRIN [Concomitant]
     Dosage: 81 MG, QD
     Route: 048
  4. CRESTOR [Concomitant]
     Dosage: 10 MG, QD
     Route: 048
  5. INDERAL [Concomitant]
     Dosage: 60 MG, QD
     Route: 048
  6. TRAMADOL [Concomitant]
     Dosage: 300 MG, QD

REACTIONS (5)
  - Injection site induration [Not Recovered/Not Resolved]
  - Injection site erythema [Recovered/Resolved]
  - Injection site pruritus [Recovered/Resolved]
  - Injection site pain [Recovered/Resolved]
  - Injection site warmth [Unknown]
